FAERS Safety Report 5261908-0 (Version None)
Quarter: 2007Q1

REPORT INFORMATION
  Report Type: 
  Country: None (occurrence: None)
  Receive Date: 20070310
  Receipt Date: 20070228
  Transmission Date: 20070707
  Serious: Yes (Other)
  Sender: FDA-Public Use
  Company Number: 2006UW11413

PATIENT
  Age: 44 Year
  Sex: Female
  Weight: 75.9 kg

DRUGS (2)
  1. SEROQUEL [Suspect]
     Indication: HALLUCINATION, AUDITORY
     Dosage: 50 MG TO 300 MG
     Route: 048
     Dates: start: 20011130, end: 20060101
  2. SEROQUEL [Suspect]
     Indication: SLEEP DISORDER
     Dosage: 50 MG TO 300 MG
     Route: 048
     Dates: start: 20011130, end: 20060101

REACTIONS (7)
  - BLOOD CHOLESTEROL INCREASED [None]
  - BLOOD TRIGLYCERIDES INCREASED [None]
  - DIABETES MELLITUS [None]
  - ESCHERICHIA BACTERAEMIA [None]
  - FLUID RETENTION [None]
  - JOINT SWELLING [None]
  - MYOCARDIAL INFARCTION [None]
